FAERS Safety Report 6032474-7 (Version None)
Quarter: 2008Q4

REPORT INFORMATION
  Report Type: 
  Country: None (occurrence: None)
  Receive Date: 20081224
  Receipt Date: 20080922
  Transmission Date: 20090506
  Serious: No
  Sender: FDA-Public Use
  Company Number: 2008PV036753

PATIENT
  Age: 80 Year
  Sex: Male
  Weight: 124.7392 kg

DRUGS (3)
  1. SYMLIN [Suspect]
     Indication: TYPE 2 DIABETES MELLITUS
     Dosage: 90 MCG;BID;SC
     Route: 058
     Dates: start: 20080801
  2. NOVOLIN 70/30 [Concomitant]
  3. HEART MEDICINE [Concomitant]

REACTIONS (1)
  - BLISTER [None]
